FAERS Safety Report 18486041 (Version 1)
Quarter: 2020Q4

REPORT INFORMATION
  Report Type: Spontaneous
  Country: US (occurrence: US)
  Receive Date: 20201110
  Receipt Date: 20201110
  Transmission Date: 20210114
  Serious: No
  Sender: FDA-Public Use
  Company Number: US-PFIZER INC-2016445041

PATIENT
  Age: 86 Year
  Sex: Female

DRUGS (17)
  1. VITAMIN D3 [Concomitant]
     Active Substance: CHOLECALCIFEROL
     Dosage: 400 IU [TAKE 400 UNITS EVERY 1  DAY
     Route: 048
  2. PERCOCET [Concomitant]
     Active Substance: ACETAMINOPHEN\OXYCODONE HYDROCHLORIDE
     Indication: PAIN
     Dosage: 1 TAB THRICE A DAY AS NEEDED PAIN
     Dates: start: 20160818
  3. PRILOSEC [Concomitant]
     Active Substance: OMEPRAZOLE MAGNESIUM
     Dosage: 40 MG, 1X/DAY [TAKE 1 CAPSULE (40 MG TOTAL) EVERY 1  DAY]
     Route: 048
     Dates: start: 20160811, end: 20170811
  4. ZANTAC [Concomitant]
     Active Substance: RANITIDINE HYDROCHLORIDE
     Dosage: 150 MG, 2X/DAY (150 MG TOTAL 2 TIMES A DAY)
     Route: 048
     Dates: start: 20160607, end: 20170607
  5. AMBIEN [Concomitant]
     Active Substance: ZOLPIDEM TARTRATE
     Indication: SLEEP DISORDER
     Dosage: 10 MG, AS NEEDED (TAKE 10 MG TOTAL NIGHTLY AS NEEDED)
     Route: 048
     Dates: start: 20160831
  6. VITAMIN C [Concomitant]
     Active Substance: ASCORBIC ACID
     Dosage: 1000 MG, 2X/DAY ( TAKE 1,000 MG TOTAL 2 TIMES A DAY
     Route: 048
     Dates: start: 20160620, end: 20170620
  7. CIPRO [Concomitant]
     Active Substance: CIPROFLOXACIN HYDROCHLORIDE
     Dosage: 500 MG, 2X/DAY [TAKE 500 MG TOTAL 2 TIMES A DAY
     Route: 048
     Dates: start: 20160821
  8. KLONOPIN [Concomitant]
     Active Substance: CLONAZEPAM
     Indication: ANXIETY
     Dosage: 0.5 MG, AS NEEDED (TAKE 0.5 MG TOTAL NIGHTLY AS NEEDED
     Route: 048
     Dates: start: 20160808
  9. DITROPAN [Concomitant]
     Active Substance: OXYBUTYNIN CHLORIDE
     Dosage: 5 MG, 2X/DAY [(5 MG TOTAL 2 (TWO) TIMES A DAY ORAL]
     Route: 048
     Dates: start: 20160808
  10. OSCAL D [Concomitant]
     Active Substance: CALCIUM CARBONATE\CHOLECALCIFEROL
     Dosage: 1000 MG, 2X/DAY
     Route: 048
     Dates: start: 20160620
  11. METHYLFOLATE [Concomitant]
     Active Substance: LEVOMEFOLATE CALCIUM
     Dosage: 1 DF, 1X/DAY TAKE 1 TABLET EVERY 1 DAY
     Route: 048
  12. VITAMIN B12 [Concomitant]
     Active Substance: CYANOCOBALAMIN
     Dosage: 1000 UG, 1X/DAY [TAKE 1,000 MCG EVERY 1  DAY
     Route: 048
  13. MYCOSTATIN [Concomitant]
     Active Substance: NYSTATIN
     Dosage: UNK, 2X/DAY  [APPLY TOPICALLY 2 TIMES A DAY
     Route: 061
     Dates: start: 20160821, end: 20170821
  14. LYRICA [Suspect]
     Active Substance: PREGABALIN
     Dosage: 150 MG, 2X/DAY [TAKE 150 MG TOTAL 2 TIMES A DAY
     Route: 048
     Dates: start: 20151224, end: 20161223
  15. MIACALCIN [Concomitant]
     Active Substance: CALCITONIN SALMON
     Dosage: 2 DF, 1X/DAY [1 SPRAY INTO EACH NOSTRIL EVERY 1 DAY. ALTERNATE NOSTRILS
     Route: 045
     Dates: start: 20160620, end: 20170620
  16. TAPAZOLE [Concomitant]
     Active Substance: METHIMAZOLE
     Dosage: 5 MG, DAILY (TAKE 1 PO DAILY)
     Route: 048
     Dates: start: 20160512
  17. MULTIVITAMIN (16) [Concomitant]
     Active Substance: VITAMINS
     Dosage: 1 DF, 1X/DAY [TAKE 1 TABLET EVERY 1 DAY
     Route: 048
     Dates: start: 20160620, end: 20170620

REACTIONS (1)
  - Hypoacusis [Unknown]
